FAERS Safety Report 5139546-X (Version None)
Quarter: 2006Q4

REPORT INFORMATION
  Report Type: 
  Country: None (occurrence: None)
  Receive Date: 20061024
  Receipt Date: 20061013
  Transmission Date: 20070319
  Serious: Yes (Disabling)
  Sender: FDA-Public Use
  Company Number: 2006126128

PATIENT
  Age: 55 Year
  Sex: Female
  Weight: 82 kg

DRUGS (11)
  1. ATORVASTATIN CALCIUM [Suspect]
     Indication: CEREBROVASCULAR DISORDER
     Dosage: (20 MG), ORAL
     Route: 048
     Dates: start: 20021009, end: 20060601
  2. AMITRIPTYLINE HCL [Concomitant]
  3. CIPRALEX (ESCITALOPRAM) [Concomitant]
  4. DICLOMAX (DICOLOFENAC SODIUM) [Concomitant]
  5. DIHYDROCODEINE (DIHYDROCODEINE) [Concomitant]
  6. FLUOXETINE [Concomitant]
  7. MOCLOBEMIDE (MOCLOBEMIDE) [Concomitant]
  8. OMEPRAZOLE [Concomitant]
  9. ACETAMINOPHEN [Concomitant]
  10. SERTRALINE [Concomitant]
  11. TRAZODONE HCL [Concomitant]

REACTIONS (5)
  - DEPERSONALISATION [None]
  - DEPRESSED MOOD [None]
  - DEPRESSION [None]
  - DEREALISATION [None]
  - DRUG EFFECT DECREASED [None]
